FAERS Safety Report 5971769-X (Version None)
Quarter: 2008Q4

REPORT INFORMATION
  Report Type: 
  Country: None (occurrence: None)
  Receive Date: 20081201
  Receipt Date: 20081126
  Transmission Date: 20090506
  Serious: Yes (Other)
  Sender: FDA-Public Use
  Company Number: JP-JNJFOC-20081106473

PATIENT
  Sex: Male

DRUGS (4)
  1. RISPERDAL [Suspect]
     Indication: DRUG USE FOR UNKNOWN INDICATION
     Dosage: AFTER EACH MEAL AND AT BEDTIME
     Route: 048
  2. CHLORPROMAZINE HCL [Concomitant]
  3. VOLTAREN [Concomitant]
     Indication: BACK PAIN
     Route: 065
  4. PELTAZON [Concomitant]
     Indication: BACK PAIN
     Route: 065

REACTIONS (3)
  - GLYCOSYLATED HAEMOGLOBIN INCREASED [None]
  - INSOMNIA [None]
  - LARGE INTESTINE CARCINOMA [None]
